FAERS Safety Report 16296460 (Version 1)
Quarter: 2019Q2

REPORT INFORMATION
  Report Type: Report from Study
  Country: CA (occurrence: CA)
  Receive Date: 20190510
  Receipt Date: 20190510
  Transmission Date: 20190711
  Serious: Yes (Other)
  Sender: FDA-Public Use
  Company Number: CA-JNJFOC-20190506094

PATIENT
  Age: 63 Year
  Sex: Male
  Weight: 107 kg

DRUGS (1)
  1. STELARA [Suspect]
     Active Substance: USTEKINUMAB
     Indication: PSORIASIS
     Dosage: STRENGTH = 90 MG
     Route: 058
     Dates: start: 20110907

REACTIONS (2)
  - Diverticulitis [Unknown]
  - Cystitis [Unknown]

NARRATIVE: CASE EVENT DATE: 20190313
